FAERS Safety Report 8394312-7 (Version None)
Quarter: 2012Q1

REPORT INFORMATION
  Report Type: 
  Country: None (occurrence: None)
  Receive Date: 20120323
  Receipt Date: 20110527
  Transmission Date: 20120608
  Serious: Yes (Other)
  Sender: FDA-Public Use
  Company Number: 163-21880-11050743

PATIENT
  Age: 83 Year
  Sex: Female

DRUGS (4)
  1. REVLIMID [Suspect]
     Indication: MULTIPLE MYELOMA
     Dosage: 15 MG, DAILY X 21 DAYS, PO,  10 MG, DAILY X 28 DAYS, PO, 5 MG, DAILY X 28, PO, 5 MG, DAILY X 12 DAYS
     Route: 048
     Dates: start: 20091101
  2. REVLIMID [Suspect]
     Indication: MULTIPLE MYELOMA
     Dosage: 15 MG, DAILY X 21 DAYS, PO,  10 MG, DAILY X 28 DAYS, PO, 5 MG, DAILY X 28, PO, 5 MG, DAILY X 12 DAYS
     Route: 048
     Dates: start: 20101001
  3. REVLIMID [Suspect]
     Indication: MULTIPLE MYELOMA
     Dosage: 15 MG, DAILY X 21 DAYS, PO,  10 MG, DAILY X 28 DAYS, PO, 5 MG, DAILY X 28, PO, 5 MG, DAILY X 12 DAYS
     Route: 048
     Dates: start: 20110301
  4. REVLIMID [Suspect]
     Indication: MULTIPLE MYELOMA
     Dosage: 15 MG, DAILY X 21 DAYS, PO,  10 MG, DAILY X 28 DAYS, PO, 5 MG, DAILY X 28, PO, 5 MG, DAILY X 12 DAYS
     Route: 048
     Dates: start: 20091001

REACTIONS (2)
  - PANCYTOPENIA [None]
  - WHITE BLOOD CELL COUNT DECREASED [None]
